FAERS Safety Report 14172591 (Version 1)
Quarter: 2017Q4

REPORT INFORMATION
  Report Type: Spontaneous
  Country: US (occurrence: None)
  Receive Date: 20171108
  Receipt Date: 20171108
  Transmission Date: 20180321
  Serious: No
  Sender: FDA-Public Use
  Company Number: None

PATIENT
  Age: 84 Year
  Sex: Male
  Weight: 90.72 kg

DRUGS (4)
  1. JANUMENT [Concomitant]
  2. VIT B-12 [Concomitant]
  3. CIPROFLOXACIN HCL 250MG 2 A DAY [Suspect]
     Active Substance: CIPROFLOXACIN HYDROCHLORIDE
     Indication: KIDNEY INFECTION
     Route: 048
     Dates: start: 20170909
  4. DIABETE TEST [Concomitant]

REACTIONS (2)
  - Transient ischaemic attack [None]
  - Tendon injury [None]

NARRATIVE: CASE EVENT DATE: 20171017
